FAERS Safety Report 8323018-5 (Version None)
Quarter: 2012Q2

REPORT INFORMATION
  Report Type: 
  Country: None (occurrence: None)
  Receive Date: 20120430
  Receipt Date: 20120416
  Transmission Date: 20120825
  Serious: Yes (Hospitalization, Other)
  Sender: FDA-Public Use
  Company Number: US-MYLANLABS-2009AL003734

PATIENT
  Age: 59 Year
  Sex: Male
  Weight: 102.06 kg

DRUGS (13)
  1. TOPROL-XL [Concomitant]
  2. COUMADIN [Concomitant]
  3. DIGOXIN [Suspect]
     Indication: MYOCARDIAL INFARCTION
     Route: 048
     Dates: start: 20021023, end: 20080501
  4. COREG [Concomitant]
  5. LIPITOR [Concomitant]
  6. CRESTOR [Concomitant]
  7. FENTANYL-100 [Concomitant]
  8. DIGOXIN [Suspect]
     Indication: CORONARY ARTERY BYPASS
     Route: 048
     Dates: start: 20021023, end: 20080501
  9. VERSED [Concomitant]
  10. LEVOXYL [Concomitant]
  11. LISINOPRIL [Concomitant]
  12. NIASPAN [Concomitant]
  13. CARVEDILOL [Concomitant]

REACTIONS (37)
  - ABDOMINAL PAIN UPPER [None]
  - CONGESTIVE CARDIOMYOPATHY [None]
  - CARDIAC DISORDER [None]
  - EPIGASTRIC DISCOMFORT [None]
  - LEFT VENTRICULAR HYPERTROPHY [None]
  - HEART RATE IRREGULAR [None]
  - ANGINA PECTORIS [None]
  - DILATATION VENTRICULAR [None]
  - BUNDLE BRANCH BLOCK LEFT [None]
  - HYPERTENSION [None]
  - ARTERIOSCLEROSIS [None]
  - CHEST PAIN [None]
  - DYSPNOEA [None]
  - MYOCARDIAL ISCHAEMIA [None]
  - CARDIAC VALVE DISEASE [None]
  - DILATATION ATRIAL [None]
  - ARTERIAL OCCLUSIVE DISEASE [None]
  - HYPERLIPIDAEMIA [None]
  - CATHETERISATION CARDIAC [None]
  - CORONARY ARTERY DISEASE [None]
  - CARDIOMEGALY [None]
  - GOUT [None]
  - PALPITATIONS [None]
  - INJURY [None]
  - HYPERHIDROSIS [None]
  - VENTRICULAR HYPOKINESIA [None]
  - ATRIAL FIBRILLATION [None]
  - NASOPHARYNGITIS [None]
  - TOBACCO USER [None]
  - ECHOCARDIOGRAM ABNORMAL [None]
  - LEFT VENTRICULAR DYSFUNCTION [None]
  - BUNDLE BRANCH BLOCK RIGHT [None]
  - ANGINA UNSTABLE [None]
  - ARRHYTHMIA [None]
  - MYOCARDIAL INFARCTION [None]
  - EJECTION FRACTION DECREASED [None]
  - ELECTROCARDIOGRAM ABNORMAL [None]
